FAERS Safety Report 4724460-1 (Version None)
Quarter: 2005Q3

REPORT INFORMATION
  Report Type: 
  Country: None (occurrence: None)
  Receive Date: 20050721
  Receipt Date: 20050706
  Transmission Date: 20060218
  Serious: Yes (Death)
  Sender: FDA-Public Use
  Company Number: A-CH2005-10119

PATIENT
  Age: 75 Year
  Sex: Male
  Weight: 80 kg

DRUGS (9)
  1. TRACLEER [Suspect]
     Indication: PULMONARY HYPERTENSION
     Dosage: 62.5 MG, BID, ORAL
     Route: 048
     Dates: start: 20031001, end: 20041124
  2. THYREX (LEVOTHYROXINE SODIUM) [Concomitant]
  3. ISOSORBIDE MONONITRATE [Concomitant]
  4. FOSITENS (FOSINOPRIL SODIUM) [Concomitant]
  5. BISOPROLOL FUMARATE [Concomitant]
  6. LASIX [Concomitant]
  7. ATORVASTATIN CALCIUM [Concomitant]
  8. FORADAL (FORMOTEROL FUMARATE) [Concomitant]
  9. COMBIVENT (SALBUTAMOL SULFATE, IPRATROPIUM BROMIDE) [Concomitant]

REACTIONS (6)
  - ALANINE AMINOTRANSFERASE INCREASED [None]
  - ASPARTATE AMINOTRANSFERASE INCREASED [None]
  - BLOOD ALKALINE PHOSPHATASE INCREASED [None]
  - BLOOD BILIRUBIN INCREASED [None]
  - CARDIAC ARREST [None]
  - MYOCARDIAL INFARCTION [None]
